FAERS Safety Report 4777428-3 (Version None)
Quarter: 2005Q3

REPORT INFORMATION
  Report Type: 
  Country: None (occurrence: None)
  Receive Date: 20050923
  Receipt Date: 20050914
  Transmission Date: 20060218
  Serious: Yes (Other)
  Sender: FDA-Public Use
  Company Number: US-BRISTOL-MYERS SQUIBB COMPANY-13110523

PATIENT
  Age: 57 Year
  Sex: Male
  Weight: 70 kg

DRUGS (3)
  1. VIDEX [Suspect]
     Indication: HIV INFECTION
  2. SUSTIVA [Concomitant]
  3. ZERIT [Concomitant]

REACTIONS (1)
  - MACULAR DEGENERATION [None]
